FAERS Safety Report 9548138 (Version 1)
Quarter: 2013Q3

REPORT INFORMATION
  Report Type: Spontaneous
  Country: US (occurrence: None)
  Receive Date: 20130710
  Receipt Date: 20130710
  Transmission Date: 20140515
  Serious: Yes (Hospitalization, Other)
  Sender: FDA-Public Use
  Company Number: US-ME-2012P1064830

PATIENT
  Age: 32 Year
  Sex: Female
  Weight: 95.26 kg

DRUGS (1)
  1. SOLODYN [Suspect]
     Dosage: 1 IN 1 D, ORAL
     Route: 048
     Dates: start: 20121002, end: 20121101

REACTIONS (1)
  - Lupus-like syndrome [None]
